FAERS Safety Report 9470037 (Version 2)
Quarter: 2013Q4

REPORT INFORMATION
  Report Type: Spontaneous
  Country: US (occurrence: US)
  Receive Date: 20130822
  Receipt Date: 20131106
  Transmission Date: 20140711
  Serious: Yes (Life-Threatening, Hospitalization)
  Sender: FDA-Public Use
  Company Number: US-BAYER-2013-100872

PATIENT
  Age: 19 Year
  Sex: Female
  Weight: 91.61 kg

DRUGS (6)
  1. MIRENA [Suspect]
     Indication: CONTRACEPTION
     Dosage: 20 MCG/24HR, CONT
     Route: 015
     Dates: start: 20090507, end: 20090911
  2. FEOSOL [Concomitant]
  3. KEFLEX [Concomitant]
     Dosage: 250 MG; 500 MG
     Route: 048
  4. LEXAPRO [Concomitant]
     Dosage: 10 MG, UNK
     Route: 048
  5. PHENERGAN [Concomitant]
     Dosage: 25 MG, UNK
     Route: 048
  6. TYLENOL W/CODEINE NO. 3 [Concomitant]
     Dosage: 300-30 MG
     Route: 048

REACTIONS (7)
  - Uterine perforation [None]
  - Abdominal pain lower [None]
  - Injury [None]
  - General physical health deterioration [None]
  - Anxiety [None]
  - Anhedonia [None]
  - Emotional distress [None]
